FAERS Safety Report 18900365 (Version 4)
Quarter: 2022Q2

REPORT INFORMATION
  Report Type: Spontaneous
  Country: JP (occurrence: JP)
  Receive Date: 20210217
  Receipt Date: 20220615
  Transmission Date: 20220721
  Serious: Yes (Hospitalization, Other)
  Sender: FDA-Public Use
  Company Number: JP-MTPC-MTPC2021-0004006AA

PATIENT
  Age: 15 Year
  Sex: Female

DRUGS (10)
  1. REMICADE [Suspect]
     Active Substance: INFLIXIMAB
     Indication: Product used for unknown indication
     Dosage: 200 MILLIGRAM, QD
     Route: 041
     Dates: start: 20180331, end: 20180804
  2. REMICADE [Suspect]
     Active Substance: INFLIXIMAB
     Dosage: 250 MILLIGRAM, QD
     Route: 041
     Dates: start: 20180901
  3. REMICADE [Suspect]
     Active Substance: INFLIXIMAB
     Dosage: 300 MILLIGRAM, QD
     Route: 041
     Dates: start: 20190119
  4. REMICADE [Suspect]
     Active Substance: INFLIXIMAB
     Dosage: 300 MILLIGRAM, QD
     Route: 041
     Dates: start: 20190601, end: 20190601
  5. PENTASA [Concomitant]
     Active Substance: MESALAMINE
     Dosage: 3000 MILLIGRAM, QD
     Route: 048
     Dates: start: 20160707
  6. MERCAPTOPURINE [Concomitant]
     Active Substance: MERCAPTOPURINE
     Dosage: 25 MILLIGRAM, QD
     Route: 048
     Dates: start: 20160927
  7. MIYA-BM [Concomitant]
     Active Substance: CLOSTRIDIUM BUTYRICUM SPORES STRAIN M-55
     Dosage: 6 DOSAGE FORM, QD
     Route: 048
     Dates: start: 20160927
  8. PRANLUKAST [Concomitant]
     Active Substance: PRANLUKAST
     Dosage: 225 MILLIGRAM, QD
     Route: 048
     Dates: start: 20170512
  9. PREDNISOLONE [Concomitant]
     Active Substance: PREDNISOLONE
     Dosage: 20 MILLIGRAM, QD
     Route: 048
     Dates: start: 20190719, end: 20190831
  10. STELARA [Concomitant]
     Active Substance: USTEKINUMAB
     Dosage: UNK
     Route: 065
     Dates: start: 20190724

REACTIONS (2)
  - Lupus-like syndrome [Recovering/Resolving]
  - Arthritis [Recovering/Resolving]

NARRATIVE: CASE EVENT DATE: 20190625
